FAERS Safety Report 23461378 (Version 2)
Quarter: 2024Q1

REPORT INFORMATION
  Report Type: Spontaneous
  Country: US (occurrence: US)
  Receive Date: 20240131
  Receipt Date: 20240201
  Transmission Date: 20240410
  Serious: Yes (Hospitalization, Other)
  Sender: FDA-Public Use
  Company Number: US-PFIZER INC-202400027424

PATIENT
  Age: 57 Year
  Sex: Female

DRUGS (2)
  1. ELREXFIO [Suspect]
     Active Substance: ELRANATAMAB-BCMM
     Indication: Plasma cell myeloma
     Dosage: 12 MG
     Dates: start: 20240123, end: 20240129
  2. ELREXFIO [Suspect]
     Active Substance: ELRANATAMAB-BCMM
     Dosage: 32 MG
     Dates: start: 20240123, end: 20240130

REACTIONS (4)
  - Cytokine release syndrome [Recovered/Resolved]
  - Facial paralysis [Recovering/Resolving]
  - Eyelid function disorder [Recovering/Resolving]
  - Neurotoxicity [Recovering/Resolving]

NARRATIVE: CASE EVENT DATE: 20240124
